FAERS Safety Report 19160043 (Version 2)
Quarter: 2023Q1

REPORT INFORMATION
  Report Type: Spontaneous
  Country: CA (occurrence: CA)
  Receive Date: 20210420
  Receipt Date: 20230131
  Transmission Date: 20230418
  Serious: Yes (Hospitalization, Other)
  Sender: FDA-Public Use
  Company Number: CA-NOVARTISPH-NVSC2021CA080211

PATIENT
  Sex: Male

DRUGS (6)
  1. PHENTOLAMINE MESYLATE [Suspect]
     Active Substance: PHENTOLAMINE MESYLATE
     Indication: Product used for unknown indication
     Dosage: UNK
     Route: 065
  2. PHENTOLAMINE MESYLATE [Suspect]
     Active Substance: PHENTOLAMINE MESYLATE
     Dosage: UNKNOWN FORMULATION
     Route: 065
  3. BISOPROLOL FUMARATE [Suspect]
     Active Substance: BISOPROLOL FUMARATE
     Indication: Product used for unknown indication
     Dosage: UNK
     Route: 065
  4. PANTOPRAZOLE [Suspect]
     Active Substance: PANTOPRAZOLE
     Indication: Product used for unknown indication
     Dosage: 40 MG, QD
     Route: 065
  5. PREDNISOLONE ACETATE [Suspect]
     Active Substance: PREDNISOLONE ACETATE
     Indication: Product used for unknown indication
     Dosage: UNK
     Route: 065
  6. PREDNISOLONE ACETATE [Suspect]
     Active Substance: PREDNISOLONE ACETATE
     Dosage: UNKNOWN FORMULATION
     Route: 065

REACTIONS (4)
  - Blood pressure increased [Unknown]
  - Heart rate increased [Unknown]
  - Ventricular extrasystoles [Unknown]
  - Dyspnoea [Unknown]
